FAERS Safety Report 7152365-8 (Version None)
Quarter: 2010Q4

REPORT INFORMATION
  Report Type: 
  Country: None (occurrence: None)
  Receive Date: 20101123
  Receipt Date: 20101109
  Transmission Date: 20110411
  Serious: Yes (Hospitalization, Other)
  Sender: FDA-Public Use
  Company Number: 020642

PATIENT
  Sex: Female
  Weight: 65 kg

DRUGS (15)
  1. CERTOLIZUMAB PEGOL (CERTOLIZUMAB PEGOL) [Suspect]
     Indication: RHEUMATOID ARTHRITIS
     Dosage: (400 MG 1X/2 WEEKS, NBR OF DOSES: 3 SUBCUTANEOUS), (200 MG 1X/2 WEEKS SUBCUTANEOUS)
     Route: 058
     Dates: end: 20101103
  2. CERTOLIZUMAB PEGOL (CERTOLIZUMAB PEGOL) [Suspect]
     Indication: RHEUMATOID ARTHRITIS
     Dosage: (400 MG 1X/2 WEEKS, NBR OF DOSES: 3 SUBCUTANEOUS), (200 MG 1X/2 WEEKS SUBCUTANEOUS)
     Route: 058
     Dates: start: 20100603
  3. METHOTREXATE [Concomitant]
  4. METHYLPREDNISOLONE [Concomitant]
  5. FOLIC ACID [Concomitant]
  6. ADCAL /00056901/ [Concomitant]
  7. ACECLOFENAC [Concomitant]
  8. REBAMIPIDE [Concomitant]
  9. RIFAMPICIN [Concomitant]
  10. PYRAZINAMIDE [Concomitant]
  11. PYRIDOXINE HCL [Concomitant]
  12. ISONIAZID [Concomitant]
  13. ETHAMBUTOL HYDROCHLORIDE [Concomitant]
  14. ACETAMINOPHEN [Concomitant]
  15. FEXOFENADINE HCL [Concomitant]

REACTIONS (7)
  - BLOOD PHOSPHORUS DECREASED [None]
  - BLOOD SODIUM DECREASED [None]
  - COUGH [None]
  - HEADACHE [None]
  - INTRACRANIAL PRESSURE INCREASED [None]
  - MENINGITIS ASEPTIC [None]
  - PLEURAL EFFUSION [None]
